FAERS Safety Report 19463394 (Version 1)
Quarter: 2021Q2

REPORT INFORMATION
  Report Type: Spontaneous
  Country: AT (occurrence: AT)
  Receive Date: 20210625
  Receipt Date: 20210625
  Transmission Date: 20210717
  Serious: Yes (Other)
  Sender: FDA-Public Use
  Company Number: NVSC2021AT135027

PATIENT
  Age: 67 Year
  Sex: Female

DRUGS (2)
  1. PIQRAY [Suspect]
     Active Substance: ALPELISIB
     Dosage: 250 MG
     Route: 065
  2. PIQRAY [Suspect]
     Active Substance: ALPELISIB
     Indication: BREAST CANCER METASTATIC
     Dosage: 300 MG
     Route: 065
     Dates: start: 20210512

REACTIONS (8)
  - Vomiting [Unknown]
  - Drug intolerance [Unknown]
  - Stomatitis [Unknown]
  - Off label use [Unknown]
  - Circulatory collapse [Unknown]
  - Nausea [Unknown]
  - Pyrexia [Unknown]
  - Rash [Unknown]
